FAERS Safety Report 12788682 (Version 1)
Quarter: 2016Q3

REPORT INFORMATION
  Report Type: Report from Study
  Country: BE (occurrence: BE)
  Receive Date: 20160928
  Receipt Date: 20160928
  Transmission Date: 20161109
  Serious: Yes (Other)
  Sender: FDA-Public Use
  Company Number: BE-ROCHE-1816494

PATIENT
  Age: 55 Year
  Sex: Female

DRUGS (1)
  1. XOLAIR [Suspect]
     Active Substance: OMALIZUMAB
     Indication: CHRONIC SPONTANEOUS URTICARIA
     Dosage: (TWICE)
     Route: 058
     Dates: start: 20160301, end: 20160404

REACTIONS (2)
  - Weight increased [Unknown]
  - Mental disorder [Unknown]

NARRATIVE: CASE EVENT DATE: 20160404
